FAERS Safety Report 4865014-6 (Version None)
Quarter: 2005Q4

REPORT INFORMATION
  Report Type: 
  Country: None (occurrence: None)
  Receive Date: 20051223
  Receipt Date: 20051213
  Transmission Date: 20060501
  Serious: Yes (Hospitalization)
  Sender: FDA-Public Use
  Company Number: PHRM2005FR03296

PATIENT
  Age: 63 Year
  Sex: Female

DRUGS (12)
  1. NEURONTIN [Concomitant]
     Dosage: 300 MG/DAY
     Route: 048
     Dates: start: 20050710
  2. EPOGEN [Concomitant]
     Dates: start: 20050301
  3. EPOGEN [Concomitant]
     Dates: start: 20050301
  4. LAMISIL [Suspect]
     Dosage: 250 MG, QD
     Route: 048
     Dates: start: 20050929, end: 20051022
  5. LASILIX [Concomitant]
     Route: 048
  6. PRAXILENE [Concomitant]
     Route: 048
  7. VASTAREL [Concomitant]
     Route: 048
  8. MOPRAL [Concomitant]
     Route: 065
  9. DOLIPRANE [Concomitant]
     Route: 065
  10. SERC [Concomitant]
     Route: 048
  11. CELECTOL [Suspect]
     Route: 048
     Dates: start: 20050929, end: 20051022
  12. ZYLORIC [Suspect]
     Dosage: 200 MG, QD
     Route: 048
     Dates: start: 20050710, end: 20051022

REACTIONS (8)
  - DERMATITIS EXFOLIATIVE [None]
  - EOSINOPHILIA [None]
  - ERYTHEMA [None]
  - FACE OEDEMA [None]
  - PRURITUS [None]
  - PURPURA [None]
  - PUVA [None]
  - PYREXIA [None]
